FAERS Safety Report 18372099 (Version 1)
Quarter: 2020Q4

REPORT INFORMATION
  Report Type: Spontaneous
  Country: JP (occurrence: JP)
  Receive Date: 20201012
  Receipt Date: 20201012
  Transmission Date: 20210114
  Serious: Yes (Other)
  Sender: FDA-Public Use
  Company Number: JP-BAXTER-2020BAX020745

PATIENT
  Age: 70 Year
  Sex: Female

DRUGS (20)
  1. DOXIL [Suspect]
     Active Substance: DOXORUBICIN HYDROCHLORIDE
     Indication: DIFFUSE LARGE B-CELL LYMPHOMA
     Dosage: R-EPOCH REGIMEN, FIRST TO FOURTH CYCLE
     Route: 041
  2. DOXIL [Suspect]
     Active Substance: DOXORUBICIN HYDROCHLORIDE
     Dosage: R-EPOCH REGIMEN, FIFTH CYCLE
     Route: 041
     Dates: start: 20200612, end: 20200614
  3. CELLTOP 100 MG/5 ML, SOLUTION INJECTABLE POUR PERFUSION [Suspect]
     Active Substance: ETOPOSIDE
     Indication: DIFFUSE LARGE B-CELL LYMPHOMA
     Dosage: R-EPOCH REGIMEN, FIRST TO FOURTH CYCLE
     Route: 041
  4. ONCOVIN [Suspect]
     Active Substance: VINCRISTINE SULFATE
     Dosage: R-EPOCH REGIMEN, FIFTH CYCLE
     Route: 041
     Dates: start: 20200612, end: 20200614
  5. DAIPHEN [Concomitant]
     Active Substance: SULFAMETHOXAZOLE\TRIMETHOPRIM
     Indication: PRODUCT USED FOR UNKNOWN INDICATION
     Route: 065
     Dates: start: 20200116
  6. ENDOXAN 1G [Suspect]
     Active Substance: CYCLOPHOSPHAMIDE
     Dosage: R-EPOCH REGIMEN, FIFTH CYCLE
     Route: 041
     Dates: start: 20200615, end: 20200615
  7. BETANIS [Concomitant]
     Active Substance: MIRABEGRON
     Indication: PRODUCT USED FOR UNKNOWN INDICATION
     Route: 065
     Dates: start: 20200130
  8. ENDOXAN 1G [Suspect]
     Active Substance: CYCLOPHOSPHAMIDE
     Indication: DIFFUSE LARGE B-CELL LYMPHOMA
     Dosage: R-EPOCH REGIMEN, FIRST TO FOURTH CYCLE
     Route: 041
  9. PREDONINE [Suspect]
     Active Substance: PREDNISOLONE
     Dosage: R-EPOCH REGIMEN, FIFTH CYCLE
     Route: 041
     Dates: start: 20200612, end: 20200616
  10. RITUXIMAB BS [Suspect]
     Active Substance: RITUXIMAB
     Indication: DIFFUSE LARGE B-CELL LYMPHOMA
     Dosage: R-EPOCH REGIMEN, FIRST TO FOURTH CYCLE, GENETICAL RECOMBINATION
     Route: 041
  11. PREDONINE [Suspect]
     Active Substance: PREDNISOLONE
     Indication: DIFFUSE LARGE B-CELL LYMPHOMA
     Dosage: R-EPOCH REGIMEN, FIRST TO FOURTH CYCLE
     Route: 041
  12. ENSURE H [Concomitant]
     Active Substance: CARBOHYDRATES\FATTY ACIDS\MINERALS\PROTEIN\VITAMINS
     Indication: PRODUCT USED FOR UNKNOWN INDICATION
     Route: 065
     Dates: start: 20200415
  13. RITUXIMAB BS [Suspect]
     Active Substance: RITUXIMAB
     Dosage: R-EPOCH REGIMEN, FIFTH CYCLE, GENETICAL RECOMBINATION
     Route: 041
     Dates: start: 20200611, end: 20200611
  14. EMEND [Concomitant]
     Active Substance: APREPITANT
     Indication: PRODUCT USED FOR UNKNOWN INDICATION
     Route: 065
     Dates: start: 20200612, end: 20200616
  15. GRANISETRON [Concomitant]
     Active Substance: GRANISETRON
     Indication: PRODUCT USED FOR UNKNOWN INDICATION
     Route: 065
     Dates: start: 20200612, end: 20200616
  16. CALONAL [Concomitant]
     Active Substance: ACETAMINOPHEN
     Indication: PRODUCT USED FOR UNKNOWN INDICATION
     Route: 065
     Dates: start: 20200611, end: 20200611
  17. CELLTOP 100 MG/5 ML, SOLUTION INJECTABLE POUR PERFUSION [Suspect]
     Active Substance: ETOPOSIDE
     Dosage: R-EPOCH REGIMEN, FIFTH CYCLE
     Route: 041
     Dates: start: 20200612, end: 20200614
  18. ONCOVIN [Suspect]
     Active Substance: VINCRISTINE SULFATE
     Indication: DIFFUSE LARGE B-CELL LYMPHOMA
     Dosage: R-EPOCH REGIMEN, FIRST TO FOURTH CYCLE
     Route: 041
  19. TAKECAB [Concomitant]
     Active Substance: VONOPRAZAN FUMARATE
     Indication: PRODUCT USED FOR UNKNOWN INDICATION
     Route: 065
  20. RESTAMIN [Concomitant]
     Active Substance: DIPHENHYDRAMINE
     Indication: PRODUCT USED FOR UNKNOWN INDICATION
     Route: 065
     Dates: start: 20200611, end: 20200611

REACTIONS (3)
  - Gamma-glutamyltransferase increased [Recovered/Resolved]
  - Alanine aminotransferase increased [Recovered/Resolved]
  - Liver disorder [Recovering/Resolving]

NARRATIVE: CASE EVENT DATE: 20200616
